FAERS Safety Report 6907016-1 (Version None)
Quarter: 2010Q3

REPORT INFORMATION
  Report Type: 
  Country: None (occurrence: None)
  Receive Date: 20100804
  Receipt Date: 20080602
  Transmission Date: 20110219
  Serious: Yes (Other)
  Sender: FDA-Public Use
  Company Number: ES-PFIZER INC-2008043018

PATIENT
  Sex: Male
  Weight: 62 kg

DRUGS (10)
  1. MARAVIROC [Suspect]
     Indication: HIV INFECTION
     Route: 048
     Dates: start: 20080218
  2. RITONAVIR [Suspect]
     Indication: HIV INFECTION
     Route: 048
     Dates: start: 20080218, end: 20080424
  3. RALTEGRAVIR [Suspect]
     Indication: HIV INFECTION
     Route: 048
     Dates: start: 20080218
  4. RALTEGRAVIR [Suspect]
     Route: 048
     Dates: start: 20080218, end: 20080424
  5. DARUNAVIR [Suspect]
     Indication: HIV INFECTION
     Route: 048
     Dates: start: 20080218
  6. CLONAZEPAM [Concomitant]
     Route: 048
     Dates: start: 19970404
  7. GABAPENTIN [Concomitant]
     Route: 048
     Dates: start: 19970521
  8. MST [Concomitant]
     Route: 048
     Dates: start: 19970716
  9. FOLINIC ACID [Concomitant]
     Route: 048
     Dates: start: 19971029
  10. OMEPRAZOLE [Concomitant]
     Route: 048
     Dates: start: 20020530

REACTIONS (1)
  - HEPATIC FAILURE [None]
